FAERS Safety Report 8772657 (Version 1)
Quarter: 2012Q4

REPORT INFORMATION
  Report Type: 
  Country: BR (occurrence: BR)
  Receive Date: 20120905
  Receipt Date: 20120905
  Transmission Date: 20130627
  Serious: Yes (Other)
  Sender: FDA-Public Use
  Company Number: PHHY2012BR075013

PATIENT
  Age: 77 None
  Sex: Female

DRUGS (2)
  1. FORASEQ [Suspect]
     Indication: DYSPNOEA
     Dosage: 1 DF, after dinner
  2. FORASEQ [Suspect]
     Indication: WHEEZING

REACTIONS (13)
  - Fall [Unknown]
  - Joint injury [Unknown]
  - Lung disorder [Unknown]
  - Osteoporosis [Unknown]
  - Visual impairment [Unknown]
  - Thyroid disorder [Unknown]
  - Fatigue [Unknown]
  - Malaise [Unknown]
  - Asthenia [Unknown]
  - Unevaluable event [None]
  - Pulmonary mass [None]
  - Retinal disorder [None]
  - Capsule physical issue [None]
